FAERS Safety Report 24637159 (Version 2)
Quarter: 2024Q4

REPORT INFORMATION
  Report Type: Report from Study
  Country: CN (occurrence: CN)
  Receive Date: 20241119
  Receipt Date: 20241201
  Transmission Date: 20250115
  Serious: Yes (Other)
  Sender: ALEXION PHARMACEUTICALS
  Company Number: CN-ASTRAZENECA-202411GLO008266CN

PATIENT
  Age: 77 Year

DRUGS (12)
  1. OLAPARIB [Suspect]
     Active Substance: OLAPARIB
     Indication: Female reproductive neoplasm
     Dosage: 150 MILLIGRAM
  2. OLAPARIB [Suspect]
     Active Substance: OLAPARIB
     Indication: Ovarian cancer
     Dosage: 300 MILLIGRAM
  3. ZOLEDRONIC ACID RANBAXY [Concomitant]
     Indication: Prophylaxis
     Dosage: UNK
  4. DEXAMETHASONE [Concomitant]
     Active Substance: DEXAMETHASONE
     Indication: Chemotherapy side effect prophylaxis
     Dosage: UNK
  5. TEPRENONE [Concomitant]
     Active Substance: TEPRENONE
     Indication: Prophylaxis
     Dosage: UNK
  6. Rivastig [Concomitant]
     Indication: Dementia Alzheimer^s type
     Dosage: UNK
  7. TANDOSPIRONE CITRATE [Concomitant]
     Active Substance: TANDOSPIRONE CITRATE
     Indication: Anxiety
     Dosage: UNK
  8. CLOPIDOGREL BISULFATE [Concomitant]
     Active Substance: CLOPIDOGREL BISULFATE
     Indication: Prophylaxis
     Dosage: UNK
  9. BATILOL [Concomitant]
     Active Substance: BATILOL
     Indication: Prophylaxis
     Dosage: UNK
  10. ROXADUSTAT [Concomitant]
     Active Substance: ROXADUSTAT
     Dosage: UNK
  11. BERAPROST SODIUM [Concomitant]
     Active Substance: BERAPROST SODIUM
     Indication: Chronic kidney disease
     Dosage: UNK
  12. ADCO-SODIUM BICARBONATE [Concomitant]
     Indication: Chronic kidney disease
     Dosage: UNK

REACTIONS (1)
  - Myelosuppression [Not Recovered/Not Resolved]
